FAERS Safety Report 12488267 (Version 2)
Quarter: 2016Q2

REPORT INFORMATION
  Report Type: Spontaneous
  Country: US (occurrence: US)
  Receive Date: 20160622
  Receipt Date: 20160622
  Transmission Date: 20160815
  Serious: No
  Sender: FDA-Public Use
  Company Number: PHEH2016US014969

PATIENT
  Sex: Female

DRUGS (2)
  1. FARYDAK [Suspect]
     Active Substance: PANOBINOSTAT
     Indication: PLASMA CELL MYELOMA
     Dosage: 15 MG, UNK
     Route: 048
  2. FARYDAK [Suspect]
     Active Substance: PANOBINOSTAT
     Dosage: 10 MG, UNK
     Route: 048

REACTIONS (1)
  - Diarrhoea [Recovered/Resolved]
